FAERS Safety Report 11597081 (Version 1)
Quarter: 2015Q4

REPORT INFORMATION
  Report Type: Spontaneous
  Country: HU (occurrence: HU)
  Receive Date: 20151006
  Receipt Date: 20151006
  Transmission Date: 20160304
  Serious: Yes (Other)
  Sender: FDA-Public Use
  Company Number: PHHY2015HU120114

PATIENT
  Age: 45 Year
  Sex: Male

DRUGS (4)
  1. ZONISAMIDE. [Suspect]
     Active Substance: ZONISAMIDE
     Indication: FRONTAL LOBE EPILEPSY
     Route: 065
  2. CARBAMAZEPINE. [Suspect]
     Active Substance: CARBAMAZEPINE
     Indication: FRONTAL LOBE EPILEPSY
     Route: 065
  3. CLOBAZAM [Suspect]
     Active Substance: CLOBAZAM
     Indication: FRONTAL LOBE EPILEPSY
     Route: 065
  4. LEVETIRACETAM. [Suspect]
     Active Substance: LEVETIRACETAM
     Indication: FRONTAL LOBE EPILEPSY
     Route: 065

REACTIONS (2)
  - Seizure [Not Recovered/Not Resolved]
  - Disease progression [Not Recovered/Not Resolved]
